FAERS Safety Report 14873013 (Version 1)
Quarter: 2018Q2

REPORT INFORMATION
  Report Type: Spontaneous
  Country: US (occurrence: US)
  Receive Date: 20180510
  Receipt Date: 20180510
  Transmission Date: 20180711
  Serious: Yes (Hospitalization)
  Sender: FDA-Public Use
  Company Number: US-B.I. PHARMACEUTICALS,INC./RIDGEFIELD-2018-BI-024865

PATIENT
  Age: 73 Year
  Sex: Male

DRUGS (5)
  1. SPIRIVA [Suspect]
     Active Substance: TIOTROPIUM BROMIDE MONOHYDRATE
     Indication: CHRONIC OBSTRUCTIVE PULMONARY DISEASE
     Dosage: ADMINISTRATION CORRECT? YES ACTION(S) TAKEN WITH PRODUCT: DOSE NOT CHANGED
     Route: 055
     Dates: start: 2016
  2. WARFARIN [Concomitant]
     Active Substance: WARFARIN
     Dosage: FORMULATION: CAPLET
     Route: 048
  3. CARVEDILOL. [Concomitant]
     Active Substance: CARVEDILOL
     Indication: HYPERTENSION
     Dosage: FORMULATION: CAPLET
     Route: 048
  4. WARFARIN [Concomitant]
     Active Substance: WARFARIN
     Indication: STENT PATENCY MAINTENANCE
     Dosage: FORMULATION: CAPLET
     Route: 048
  5. SIMVASTATIN. [Concomitant]
     Active Substance: SIMVASTATIN
     Indication: BLOOD CHOLESTEROL INCREASED
     Dosage: FORMULATION: CAPLET
     Route: 048

REACTIONS (4)
  - Dehydration [Recovered/Resolved]
  - Dyspnoea [Unknown]
  - Influenza [Recovered/Resolved]
  - Fall [Recovered/Resolved]

NARRATIVE: CASE EVENT DATE: 20180129
